FAERS Safety Report 14226018 (Version 1)
Quarter: 2017Q4

REPORT INFORMATION
  Report Type: Spontaneous
  Country: ES (occurrence: ES)
  Receive Date: 20171127
  Receipt Date: 20171127
  Transmission Date: 20180321
  Serious: Yes (Other)
  Sender: FDA-Public Use
  Company Number: ES-JNJFOC-20171115158

PATIENT
  Age: 45 Year
  Sex: Male
  Weight: 84 kg

DRUGS (5)
  1. EUTIROX [Concomitant]
     Active Substance: LEVOTHYROXINE SODIUM
     Indication: HYPOTHYROIDISM
     Route: 048
  2. OLANZAPINE. [Interacting]
     Active Substance: OLANZAPINE
     Indication: BIPOLAR I DISORDER
     Route: 048
     Dates: start: 20160619, end: 20160927
  3. TEGRETOL [Interacting]
     Active Substance: CARBAMAZEPINE
     Indication: BIPOLAR I DISORDER
     Route: 048
     Dates: end: 20160927
  4. DEPAKINE CHRONO [Interacting]
     Active Substance: VALPROATE SODIUM
     Indication: BIPOLAR I DISORDER
     Route: 048
     Dates: start: 20160620
  5. INVEGA [Suspect]
     Active Substance: PALIPERIDONE
     Indication: BIPOLAR I DISORDER
     Route: 048
     Dates: start: 20160621, end: 20160927

REACTIONS (3)
  - Food craving [Not Recovered/Not Resolved]
  - Drug interaction [Not Recovered/Not Resolved]
  - Abnormal weight gain [Not Recovered/Not Resolved]

NARRATIVE: CASE EVENT DATE: 201606
